FAERS Safety Report 10064856 (Version 4)
Quarter: 2015Q2

REPORT INFORMATION
  Report Type: Spontaneous
  Country: US (occurrence: US)
  Receive Date: 20140408
  Receipt Date: 20150519
  Transmission Date: 20150821
  Serious: Yes (Death, Life-Threatening, Hospitalization, Other)
  Sender: FDA-Public Use
  Company Number: US-009507513-1404USA003891

PATIENT
  Sex: Male
  Weight: 86.17 kg

DRUGS (2)
  1. JANUMET [Suspect]
     Active Substance: METFORMIN HYDROCHLORIDE\SITAGLIPTIN PHOSPHATE
     Dosage: 50-1000 MG, BID
     Route: 048
     Dates: end: 20110830
  2. JANUMET [Suspect]
     Active Substance: METFORMIN HYDROCHLORIDE\SITAGLIPTIN PHOSPHATE
     Indication: TYPE 2 DIABETES MELLITUS
     Dosage: 50-1000 MG, QD
     Route: 048
     Dates: start: 20081027, end: 20110820

REACTIONS (21)
  - Cardiac disorder [Unknown]
  - Angina pectoris [Unknown]
  - Skin cancer [Unknown]
  - Left ventricular hypertrophy [Unknown]
  - Cataract operation [Unknown]
  - Splenic vein occlusion [Unknown]
  - Hypertension [Unknown]
  - Intraocular lens implant [Unknown]
  - Hepatic cancer [Unknown]
  - Syncope [Unknown]
  - Insulin-requiring type 2 diabetes mellitus [Unknown]
  - Pulmonary mass [Unknown]
  - Aortic valve stenosis [Unknown]
  - Ear operation [Unknown]
  - Constipation [Unknown]
  - Aortic valve incompetence [Unknown]
  - Drug ineffective [Unknown]
  - Metastases to spleen [Unknown]
  - Pancreatic carcinoma metastatic [Fatal]
  - Bundle branch block left [Unknown]
  - Resting tremor [Unknown]

NARRATIVE: CASE EVENT DATE: 20100920
